FAERS Safety Report 8154692-4 (Version None)
Quarter: 2012Q1

REPORT INFORMATION
  Report Type: 
  Country: None (occurrence: None)
  Receive Date: 20120221
  Receipt Date: 20120214
  Transmission Date: 20120608
  Serious: Yes (Hospitalization)
  Sender: FDA-Public Use
  Company Number: US-ABBOTT-12P-163-0889904-00

PATIENT
  Sex: Female
  Weight: 61.744 kg

DRUGS (8)
  1. VITAMIN D [Concomitant]
     Indication: HYPOVITAMINOSIS
  2. HUMIRA [Suspect]
     Indication: RHEUMATOID ARTHRITIS
     Dosage: TEMPORARILY STOPPED AFTER 2 DOSES BECAUSE OF EVENTS
     Dates: start: 20110915, end: 20111001
  3. FOLIC ACID [Concomitant]
     Indication: VITAMIN SUPPLEMENTATION
  4. METHOTREXATE [Concomitant]
     Indication: RHEUMATOID ARTHRITIS
  5. TOPIRAMATE [Concomitant]
     Indication: HEADACHE
  6. CYANOCOBALAMIN [Concomitant]
     Indication: VITAMIN B12 DEFICIENCY
  7. CELEBREX [Concomitant]
     Indication: RHEUMATOID ARTHRITIS
  8. TRAMADOL HCL [Concomitant]
     Indication: RHEUMATOID ARTHRITIS

REACTIONS (9)
  - OVARIAN NEOPLASM [None]
  - THYROID NEOPLASM [None]
  - JOINT RANGE OF MOTION DECREASED [None]
  - DYSURIA [None]
  - BLADDER DILATATION [None]
  - GAIT DISTURBANCE [None]
  - THYROID FUNCTION TEST ABNORMAL [None]
  - UTERINE NEOPLASM [None]
  - THYROID CANCER [None]
